FAERS Safety Report 14209813 (Version 1)
Quarter: 2017Q4

REPORT INFORMATION
  Report Type: Spontaneous
  Country: US (occurrence: US)
  Receive Date: 20171121
  Receipt Date: 20171121
  Transmission Date: 20180321
  Serious: No
  Sender: FDA-Public Use
  Company Number: US-PFIZER INC-2017501313

PATIENT
  Age: 10 Year
  Sex: Male

DRUGS (3)
  1. MIRALAX [Concomitant]
     Active Substance: POLYETHYLENE GLYCOL 3350
     Indication: CONSTIPATION
     Dosage: UNK, AS NEEDED (ONE SPOON OR ONE SPOON AND A HALF MIXED WITH MILK)
  2. GENOTROPIN [Suspect]
     Active Substance: SOMATROPIN
     Indication: RUBINSTEIN-TAYBI SYNDROME
     Dosage: .8 MG, 1X/DAY
     Dates: start: 2017
  3. ALBUTEROL FLOVENT [Concomitant]
     Indication: ASTHMA
     Dosage: 2 DF, 1X/DAY

REACTIONS (2)
  - Product use in unapproved indication [Unknown]
  - Drug effect incomplete [Unknown]
